FAERS Safety Report 16472118 (Version 1)
Quarter: 2019Q2

REPORT INFORMATION
  Report Type: Spontaneous
  Country: US (occurrence: US)
  Receive Date: 20190625
  Receipt Date: 20190625
  Transmission Date: 20190711
  Serious: No
  Sender: FDA-Public Use
  Company Number: US-TEVA-2019-US-1058065

PATIENT
  Age: 73 Year
  Sex: Male

DRUGS (1)
  1. WARFARIN TEVA [Suspect]
     Active Substance: WARFARIN SODIUM
     Indication: PROPHYLAXIS
     Route: 065

REACTIONS (2)
  - International normalised ratio decreased [Unknown]
  - Drug ineffective [Unknown]

NARRATIVE: CASE EVENT DATE: 201901
